FAERS Safety Report 6266675-X (Version None)
Quarter: 2009Q3

REPORT INFORMATION
  Report Type: 
  Country: None (occurrence: None)
  Receive Date: 20090710
  Receipt Date: 20090624
  Transmission Date: 20100115
  Serious: Yes (Hospitalization)
  Sender: FDA-Public Use
  Company Number: B0582047A

PATIENT
  Age: 45 Year
  Sex: Male

DRUGS (1)
  1. LAMOTRIGINE [Suspect]
     Indication: BIPOLAR DISORDER

REACTIONS (8)
  - BLOOD LACTIC ACID INCREASED [None]
  - BLOOD PH DECREASED [None]
  - DRUG LEVEL ABOVE THERAPEUTIC [None]
  - MUSCLE CONTRACTIONS INVOLUNTARY [None]
  - OVERDOSE [None]
  - PO2 DECREASED [None]
  - PROTRUSION TONGUE [None]
  - SOMNOLENCE [None]
